FAERS Safety Report 16142360 (Version 2)
Quarter: 2019Q2

REPORT INFORMATION
  Report Type: Spontaneous
  Country: US (occurrence: US)
  Receive Date: 20190401
  Receipt Date: 20190401
  Transmission Date: 20190711
  Serious: Yes (Other)
  Sender: FDA-Public Use
  Company Number: US-CELGENEUS-USA-20190308901

PATIENT
  Sex: Female

DRUGS (2)
  1. OTEZLA [Suspect]
     Active Substance: APREMILAST
     Indication: PSORIASIS
     Dosage: 40 MILLIGRAM
     Route: 048
  2. OTEZLA [Suspect]
     Active Substance: APREMILAST
     Indication: PSORIATIC ARTHROPATHY
     Dosage: 10 MILLIGRAM
     Route: 048

REACTIONS (8)
  - Ear discomfort [Not Recovered/Not Resolved]
  - Headache [Not Recovered/Not Resolved]
  - Nausea [Not Recovered/Not Resolved]
  - Psoriasis [Not Recovered/Not Resolved]
  - Liver disorder [Not Recovered/Not Resolved]
  - Renal disorder [Not Recovered/Not Resolved]
  - Diarrhoea [Not Recovered/Not Resolved]
  - Retching [Not Recovered/Not Resolved]

NARRATIVE: CASE EVENT DATE: 2018
